FAERS Safety Report 13261979 (Version 1)
Quarter: 2017Q1

REPORT INFORMATION
  Report Type: Not Available
  Country: US (occurrence: US)
  Receive Date: 20170222
  Receipt Date: 20170222
  Transmission Date: 20170428
  Serious: No
  Sender: FDA-Public Use
  Company Number: US-HISAMITSU-2016-US-007579

PATIENT
  Age: 70 Year
  Sex: Female
  Weight: 67.59 kg

DRUGS (1)
  1. SALONPAS PAIN RELIEF [Suspect]
     Active Substance: MENTHOL\METHYL SALICYLATE
     Dosage: 3 TO 4 PATCHES TWICE PER DAY
     Route: 061
     Dates: start: 20160922, end: 20160926

REACTIONS (3)
  - Application site erythema [Recovered/Resolved]
  - Nausea [Recovered/Resolved]
  - Intentional product misuse [Unknown]

NARRATIVE: CASE EVENT DATE: 20160922
